FAERS Safety Report 16612008 (Version 1)
Quarter: 2019Q3

REPORT INFORMATION
  Report Type: Spontaneous
  Country: CO (occurrence: CO)
  Receive Date: 20190722
  Receipt Date: 20190722
  Transmission Date: 20191004
  Serious: Yes (Hospitalization)
  Sender: FDA-Public Use
  Company Number: CO-BIOMARINAP-CO-2019-124804

PATIENT
  Age: 9 Year
  Sex: Male
  Weight: 31 kg

DRUGS (1)
  1. VIMIZIM [Suspect]
     Active Substance: ELOSULFASE ALFA
     Indication: MUCOPOLYSACCHARIDOSIS IV
     Dosage: 60 MILLIGRAM, QW
     Route: 042
     Dates: start: 20160721

REACTIONS (7)
  - Pyrexia [Unknown]
  - Malaise [Unknown]
  - Influenza like illness [Unknown]
  - Headache [Unknown]
  - Pain in extremity [Unknown]
  - Rhinorrhoea [Unknown]
  - Discomfort [Unknown]

NARRATIVE: CASE EVENT DATE: 20190715
